FAERS Safety Report 14880022 (Version 1)
Quarter: 2018Q2

REPORT INFORMATION
  Report Type: Spontaneous
  Country: US (occurrence: US)
  Receive Date: 20180511
  Receipt Date: 20180511
  Transmission Date: 20180711
  Serious: Yes (Other)
  Sender: FDA-Public Use
  Company Number: US-ACCORD-066740

PATIENT
  Age: 61 Year
  Sex: Male

DRUGS (5)
  1. MYCOPHENOLIC ACID. [Suspect]
     Active Substance: MYCOPHENOLIC ACID
     Indication: IMMUNOSUPPRESSION
  2. CLOFAZIMINE [Concomitant]
     Active Substance: CLOFAZIMINE
     Indication: LOCALISED INFECTION
     Route: 042
  3. TIGECYCLINE. [Suspect]
     Active Substance: TIGECYCLINE
     Indication: LOCALISED INFECTION
  4. LINEZOLID. [Concomitant]
     Active Substance: LINEZOLID
  5. CICLOSPORIN [Suspect]
     Active Substance: CYCLOSPORINE
     Indication: IMMUNOSUPPRESSION

REACTIONS (3)
  - Localised infection [Recovered/Resolved]
  - Pancreatitis acute [Recovering/Resolving]
  - Mycobacterium chelonae infection [Recovered/Resolved]
